FAERS Safety Report 14033081 (Version 2)
Quarter: 2017Q4

REPORT INFORMATION
  Report Type: Report from Study
  Country: US (occurrence: US)
  Receive Date: 20171002
  Receipt Date: 20171103
  Transmission Date: 20180321
  Serious: Yes (Other)
  Sender: FDA-Public Use
  Company Number: US-BIOGEN-2017BI00465050

PATIENT
  Age: 39 Year
  Sex: Male

DRUGS (8)
  1. TECFIDERA [Suspect]
     Active Substance: DIMETHYL FUMARATE
     Route: 065
     Dates: start: 20130605, end: 20131222
  2. TECFIDERA [Suspect]
     Active Substance: DIMETHYL FUMARATE
     Route: 065
     Dates: start: 20140429
  3. LISINOPRIL. [Concomitant]
     Active Substance: LISINOPRIL
     Indication: PRODUCT USED FOR UNKNOWN INDICATION
     Route: 065
  4. DILANTIN [Concomitant]
     Active Substance: PHENYTOIN
     Indication: PRODUCT USED FOR UNKNOWN INDICATION
     Route: 065
  5. KEPPRA [Concomitant]
     Active Substance: LEVETIRACETAM
     Indication: PRODUCT USED FOR UNKNOWN INDICATION
     Route: 065
  6. PROZAC [Concomitant]
     Active Substance: FLUOXETINE HYDROCHLORIDE
     Indication: PRODUCT USED FOR UNKNOWN INDICATION
     Route: 065
  7. TECFIDERA [Suspect]
     Active Substance: DIMETHYL FUMARATE
     Indication: MULTIPLE SCLEROSIS
     Dosage: MAINTENANCE DOSE
     Route: 065
  8. TECFIDERA [Suspect]
     Active Substance: DIMETHYL FUMARATE
     Route: 065
     Dates: start: 20170919

REACTIONS (1)
  - Seizure [Unknown]

NARRATIVE: CASE EVENT DATE: 20170906
